FAERS Safety Report 6188587-2 (Version None)
Quarter: 2009Q2

REPORT INFORMATION
  Report Type: 
  Country: None (occurrence: None)
  Receive Date: 20090513
  Receipt Date: 20090505
  Transmission Date: 20091009
  Serious: Yes (Other)
  Sender: FDA-Public Use
  Company Number: A0782571A

PATIENT
  Sex: Male

DRUGS (19)
  1. LAMICTAL [Suspect]
     Dosage: 200MG TWICE PER DAY
     Route: 048
     Dates: start: 20030501
  2. POTASSIUM CHLORIDE [Concomitant]
  3. AMIODARONE [Concomitant]
  4. CYMBALTA [Concomitant]
  5. CARVEDILOL [Concomitant]
  6. HYDROXINE [Concomitant]
  7. LASIX [Concomitant]
  8. LEXAPRO [Concomitant]
  9. LUNESTA [Concomitant]
  10. NEURONTIN [Concomitant]
  11. NEXIUM [Concomitant]
  12. SINGULAIR [Concomitant]
  13. PROVIGIL [Concomitant]
  14. PRINIVIL [Concomitant]
  15. VYTORIN [Concomitant]
  16. VICODIN [Concomitant]
  17. COMBIVENT [Concomitant]
  18. PROVENTIL [Concomitant]
  19. SYNTHROID [Concomitant]

REACTIONS (1)
  - CHOKING [None]
